FAERS Safety Report 8541612-3 (Version None)
Quarter: 2012Q3

REPORT INFORMATION
  Report Type: 
  Country: None (occurrence: None)
  Receive Date: 20120726
  Receipt Date: 20120718
  Transmission Date: 20120928
  Serious: Yes (Death)
  Sender: FDA-Public Use
  Company Number: SE-ROCHE-1076064

PATIENT
  Age: 70 Year
  Sex: Female

DRUGS (27)
  1. ACTEMRA [Suspect]
     Indication: RHEUMATOID ARTHRITIS
     Dosage: CCONCENTRATION 20MG/ML
     Route: 042
     Dates: start: 20120508, end: 20120508
  2. ATACAND [Concomitant]
  3. MIRCERA [Concomitant]
  4. FUROSEMIDE [Concomitant]
  5. NOVORAPID [Concomitant]
  6. SYMBICORT [Concomitant]
  7. AMLODIPIN ACTAVIS [Concomitant]
  8. LEVOTHYROXINE SODIUM [Concomitant]
  9. ORALOVITE [Concomitant]
  10. OXYCONTIN [Concomitant]
     Dosage: PROLONGED RELEASE
  11. MOVIPREP [Concomitant]
     Dosage: POWDER FOR ORAL SOLUTION IN SACHET
  12. CETIRIZINE HCL [Concomitant]
  13. ETALPHA [Concomitant]
  14. LANTUS [Concomitant]
  15. VISCOTEARS [Concomitant]
  16. FOSRENOL [Concomitant]
  17. NATRIUMBIKARBONAT [Concomitant]
  18. ACETYLCYSTEINE [Concomitant]
  19. CANODERM [Concomitant]
  20. SIMVASTATIN [Concomitant]
  21. OXYCODONE HCL [Concomitant]
  22. ALVEDON [Concomitant]
  23. HUMALOG [Concomitant]
  24. DOXAZOSIN MESYLATE [Concomitant]
  25. BRICANYL [Concomitant]
  26. ASPIRIN [Concomitant]
  27. PERSANTIN DEPOT [Concomitant]
     Dosage: PROLONGED RELEASE

REACTIONS (1)
  - SUDDEN DEATH [None]
